FAERS Safety Report 15794866 (Version 1)
Quarter: 2019Q1

REPORT INFORMATION
  Report Type: Report from Study
  Country: BR (occurrence: BR)
  Receive Date: 20190107
  Receipt Date: 20190107
  Transmission Date: 20190417
  Serious: Yes (Death, Other)
  Sender: FDA-Public Use
  Company Number: BR-ASTELLAS-2019US000470

PATIENT
  Age: 7 Year
  Sex: Female

DRUGS (4)
  1. AMPHOTERICIN B, LIPOSOME [Suspect]
     Active Substance: AMPHOTERICIN B
     Indication: SKIN NECROSIS
     Route: 065
     Dates: start: 2015
  2. VORICONAZOLE. [Suspect]
     Active Substance: VORICONAZOLE
     Indication: FUNGAL SKIN INFECTION
  3. AMPHOTERICIN B, LIPOSOME [Suspect]
     Active Substance: AMPHOTERICIN B
     Indication: FUNGAL SKIN INFECTION
  4. VORICONAZOLE. [Suspect]
     Active Substance: VORICONAZOLE
     Indication: SKIN NECROSIS
     Route: 065
     Dates: start: 2015

REACTIONS (1)
  - Drug ineffective [Fatal]

NARRATIVE: CASE EVENT DATE: 2015
